FAERS Safety Report 6576209-8 (Version None)
Quarter: 2010Q1

REPORT INFORMATION
  Report Type: 
  Country: None (occurrence: None)
  Receive Date: 20100209
  Receipt Date: 20100128
  Transmission Date: 20100710
  Serious: Yes (Hospitalization)
  Sender: FDA-Public Use
  Company Number: JP-AMGEN-US390983

PATIENT
  Sex: Female
  Weight: 44 kg

DRUGS (6)
  1. ENBREL [Suspect]
     Indication: RHEUMATOID ARTHRITIS
     Route: 058
     Dates: start: 20090417, end: 20100118
  2. RHEUMATREX [Suspect]
     Indication: RHEUMATOID ARTHRITIS
     Route: 048
     Dates: start: 20081031, end: 20100118
  3. PREDNISOLONE [Suspect]
     Indication: RHEUMATOID ARTHRITIS
     Route: 048
     Dates: start: 20090417
  4. TACROLIMUS [Concomitant]
     Dosage: 1 CAPSULE; UNSPECIFIED FREQUENCY
     Route: 048
     Dates: start: 20090114
  5. FOLIAMIN [Concomitant]
     Indication: PROPHYLAXIS
     Route: 048
     Dates: start: 20090417, end: 20100118
  6. RISEDRONATE SODIUM [Concomitant]
     Indication: OSTEOPOROSIS
     Route: 048
     Dates: start: 20090417

REACTIONS (2)
  - PLEURISY [None]
  - STAPHYLOCOCCAL INFECTION [None]
